FAERS Safety Report 8860540 (Version 1)
Quarter: 2012Q4

REPORT INFORMATION
  Report Type: 
  Country: PT (occurrence: PT)
  Receive Date: 20121025
  Receipt Date: 20121025
  Transmission Date: 20130627
  Serious: Yes (Death, Life-Threatening, Hospitalization)
  Sender: FDA-Public Use
  Company Number: PT-COVIDIEN/TYCO HEALTHCARE/MALLINCKRODT-T201203664

PATIENT
  Age: 72 Year
  Sex: Male

DRUGS (1)
  1. OPTIRAY [Suspect]
     Indication: COMPUTERISED TOMOGRAM
     Dosage: 678 mg, single
     Route: 042
     Dates: start: 20120813, end: 20120813

REACTIONS (5)
  - Cardiac arrest [Fatal]
  - Malaise [Not Recovered/Not Resolved]
  - Presyncope [Not Recovered/Not Resolved]
  - Hypotension [Not Recovered/Not Resolved]
  - Dyspnoea [Not Recovered/Not Resolved]
